FAERS Safety Report 5064125-2 (Version None)
Quarter: 2006Q3

REPORT INFORMATION
  Report Type: 
  Country: None (occurrence: None)
  Receive Date: 20060728
  Receipt Date: 20060510
  Transmission Date: 20061208
  Serious: Yes (Hospitalization, Other)
  Sender: FDA-Public Use
  Company Number: PHNU2006DE01922

PATIENT
  Age: 60 Year
  Sex: Female

DRUGS (3)
  1. AREDIA [Suspect]
     Indication: METASTASES TO BONE
     Dosage: 60 MG, TIW
     Dates: start: 19990701, end: 20020301
  2. ZOMETA [Suspect]
     Indication: METASTASES TO BONE
     Dosage: 4 MG, QD
     Dates: start: 20020401, end: 20060419
  3. FEMARA [Concomitant]
     Indication: BREAST CANCER METASTATIC
     Dosage: 2.5 MG, QD
     Route: 048
     Dates: start: 19990701

REACTIONS (11)
  - BONE PAIN [None]
  - COMPUTERISED TOMOGRAM ABNORMAL [None]
  - DENTAL TREATMENT [None]
  - FALL [None]
  - FEMUR FRACTURE [None]
  - INFLAMMATION [None]
  - OSTEONECROSIS [None]
  - PURULENT DISCHARGE [None]
  - SURGERY [None]
  - TOOTH EXTRACTION [None]
  - WOUND DEBRIDEMENT [None]
